FAERS Safety Report 4624899-9 (Version None)
Quarter: 2005Q2

REPORT INFORMATION
  Report Type: 
  Country: None (occurrence: None)
  Receive Date: 20050401
  Receipt Date: 20050303
  Transmission Date: 20051028
  Serious: Yes (Hospitalization)
  Sender: FDA-Public Use
  Company Number: US-JNJFOC-20050301720

PATIENT
  Sex: Female
  Weight: 90.72 kg

DRUGS (8)
  1. DURAGESIC-100 [Suspect]
     Route: 062
  2. DURAGESIC-100 [Suspect]
     Route: 062
  3. ACTIQ [Concomitant]
     Route: 049
  4. LIPITOR [Concomitant]
     Route: 049
  5. PERCOCET [Concomitant]
     Route: 049
  6. PERCOCET [Concomitant]
     Route: 049
  7. TOPRAL [Concomitant]
     Route: 049
  8. ZESTRIL [Concomitant]
     Route: 049

REACTIONS (8)
  - ANOREXIA [None]
  - ASTHENIA [None]
  - BOWEL SOUNDS ABNORMAL [None]
  - CHILLS [None]
  - DERMATITIS CONTACT [None]
  - HYPERHIDROSIS [None]
  - INSOMNIA [None]
  - WEIGHT DECREASED [None]
